FAERS Safety Report 15149064 (Version 1)
Quarter: 2018Q3

REPORT INFORMATION
  Report Type: Spontaneous
  Country: IE (occurrence: IE)
  Receive Date: 20180716
  Receipt Date: 20180716
  Transmission Date: 20181010
  Serious: Yes (Hospitalization)
  Sender: FDA-Public Use
  Company Number: IE-MYLANLABS-2018M1051414

PATIENT
  Age: 77 Year
  Sex: Male

DRUGS (3)
  1. SULFASALAZINE. [Suspect]
     Active Substance: SULFASALAZINE
     Indication: RHEUMATOID ARTHRITIS
     Route: 050
  2. METHOTREXATE. [Suspect]
     Active Substance: METHOTREXATE
     Indication: RHEUMATOID ARTHRITIS
     Route: 050
  3. TOCILIZUMAB. [Suspect]
     Active Substance: TOCILIZUMAB
     Indication: RHEUMATOID ARTHRITIS
     Route: 050

REACTIONS (7)
  - Pneumonia aspiration [Unknown]
  - Varicella zoster virus infection [Recovering/Resolving]
  - Cranial nerve disorder [Recovering/Resolving]
  - Herpes zoster oticus [Recovering/Resolving]
  - Dysphagia [Unknown]
  - Infection reactivation [Recovering/Resolving]
  - Eye movement disorder [Recovered/Resolved]
